FAERS Safety Report 4309528-6 (Version None)
Quarter: 2004Q1

REPORT INFORMATION
  Report Type: 
  Country: None (occurrence: None)
  Receive Date: 20040301
  Receipt Date: 20040217
  Transmission Date: 20041129
  Serious: Yes (Other)
  Sender: FDA-Public Use
  Company Number: K200400219

PATIENT
  Age: 82 Year
  Sex: Female

DRUGS (1)
  1. CORTISPORIN [Suspect]
     Dosage: 2 DROPS, QID, AURICULAR (OTIC)
     Route: 001

REACTIONS (2)
  - DEAFNESS [None]
  - TYMPANIC MEMBRANE PERFORATION [None]
